FAERS Safety Report 6431986-1 (Version None)
Quarter: 2009Q4

REPORT INFORMATION
  Report Type: 
  Country: None (occurrence: None)
  Receive Date: 20091109
  Receipt Date: 20091026
  Transmission Date: 20100525
  Serious: No
  Sender: FDA-Public Use
  Company Number: US-JNJFOC-20091006658

PATIENT
  Sex: Female
  Weight: 62.6 kg

DRUGS (14)
  1. DURAGESIC-100 [Suspect]
     Route: 062
     Dates: end: 20091017
  2. DURAGESIC-100 [Suspect]
     Route: 062
     Dates: end: 20091017
  3. DURAGESIC-100 [Suspect]
     Route: 062
     Dates: end: 20091017
  4. DURAGESIC-100 [Suspect]
     Indication: BACK PAIN
     Route: 062
     Dates: end: 20091017
  5. FENTANYL TRANSDERMAL SYSTEM [Suspect]
     Indication: DRUG USE FOR UNKNOWN INDICATION
     Route: 062
     Dates: start: 20080101, end: 20080101
  6. NEXIUM [Concomitant]
     Indication: GASTRIC DISORDER
     Route: 048
  7. SINGULAIR [Concomitant]
     Indication: MULTIPLE ALLERGIES
     Route: 048
  8. ASTELIN [Concomitant]
     Indication: MULTIPLE ALLERGIES
     Dosage: 1 SPRAY
     Route: 045
  9. COMBIVENT [Concomitant]
     Indication: MULTIPLE ALLERGIES
     Dosage: 2 PUFFS
     Route: 055
  10. NEURONTIN [Concomitant]
     Indication: PAIN
     Route: 048
  11. CELEBREX [Concomitant]
     Indication: PAIN
     Route: 048
  12. ZYRTEC-D 12 HOUR [Concomitant]
     Indication: MULTIPLE ALLERGIES
     Route: 048
  13. DIAZEPAM [Concomitant]
     Indication: NERVOUSNESS
     Route: 048
  14. TEMAZEPAM [Concomitant]
     Indication: SLEEP DISORDER
     Route: 048

REACTIONS (10)
  - CONSTIPATION [None]
  - DRUG PRESCRIBING ERROR [None]
  - HYPERHIDROSIS [None]
  - HYPERSENSITIVITY [None]
  - INADEQUATE ANALGESIA [None]
  - MENOPAUSE [None]
  - NAUSEA [None]
  - NERVOUSNESS [None]
  - TREMOR [None]
  - WEIGHT INCREASED [None]
